FAERS Safety Report 16178522 (Version 2)
Quarter: 2019Q2

REPORT INFORMATION
  Report Type: Spontaneous
  Country: US (occurrence: US)
  Receive Date: 20190410
  Receipt Date: 20190423
  Transmission Date: 20190711
  Serious: Yes (Other)
  Sender: FDA-Public Use
  Company Number: US-AUROBINDO-AUR-APL-2019-018882

PATIENT

DRUGS (2)
  1. LORAZEPAM. [Suspect]
     Active Substance: LORAZEPAM
     Indication: ADJUSTMENT DISORDER
  2. LORAZEPAM. [Suspect]
     Active Substance: LORAZEPAM
     Indication: COGNITIVE DISORDER
     Dosage: UNK
     Route: 065

REACTIONS (3)
  - Cognitive disorder [Recovering/Resolving]
  - Condition aggravated [Recovering/Resolving]
  - Drug ineffective [Recovering/Resolving]
